FAERS Safety Report 9607601 (Version 3)
Quarter: 2013Q4

REPORT INFORMATION
  Report Type: Report from Study
  Country: US (occurrence: US)
  Receive Date: 20131009
  Receipt Date: 20131118
  Transmission Date: 20140711
  Serious: No
  Sender: FDA-Public Use
  Company Number: PHEH2013US017861

PATIENT
  Age: 57 Year
  Sex: Female

DRUGS (11)
  1. TASIGNA [Suspect]
     Indication: CHRONIC MYELOID LEUKAEMIA
     Dosage: 300 MG, BID
     Route: 048
     Dates: start: 201112
  2. TACLONEX [Concomitant]
     Dosage: 60 G, BID
     Route: 061
  3. LASIX [Concomitant]
     Dosage: 1 DF, QD
  4. PREVACID [Concomitant]
     Dosage: 1 DF, QD
  5. SYNTHROID [Concomitant]
     Dosage: 1 DF, QD
  6. MAGNESIUM OXIDE [Concomitant]
     Dosage: 1 DF, QD
  7. RELAFEN [Concomitant]
     Dosage: 1 DF, BID
  8. TRAZODONE HCL [Concomitant]
     Dosage: 1 DF, UNK
  9. FLAXSEED OIL [Concomitant]
  10. SALEX [Concomitant]
  11. VITAMIN D3 [Concomitant]

REACTIONS (1)
  - Fatigue [Not Recovered/Not Resolved]
